FAERS Safety Report 13464714 (Version 1)
Quarter: 2017Q2

REPORT INFORMATION
  Report Type: Spontaneous
  Country: US (occurrence: US)
  Receive Date: 20170420
  Receipt Date: 20170420
  Transmission Date: 20170830
  Serious: Yes (Other)
  Sender: FDA-Public Use
  Company Number: US-ROCHE-722533

PATIENT
  Age: 19 Year
  Sex: Female
  Weight: 58.1 kg

DRUGS (4)
  1. ACCUTANE [Suspect]
     Active Substance: ISOTRETINOIN
     Indication: ACNE
     Route: 065
     Dates: start: 20020417, end: 20020514
  2. ACCUTANE [Suspect]
     Active Substance: ISOTRETINOIN
     Route: 065
     Dates: start: 20020730, end: 20020919
  3. ACCUTANE [Suspect]
     Active Substance: ISOTRETINOIN
     Dosage: PRESCRIBED AS 40/80 MG.
     Route: 065
     Dates: start: 20020514, end: 20020730
  4. ORTHO TRI CYCLEN [Concomitant]
     Active Substance: ETHINYL ESTRADIOL\NORGESTIMATE
     Indication: CONTRACEPTION
     Route: 065

REACTIONS (21)
  - Sinusitis [Unknown]
  - Road traffic accident [Unknown]
  - Dyspepsia [Unknown]
  - Insomnia [Unknown]
  - Upper respiratory tract infection [Unknown]
  - Neck pain [Unknown]
  - Gastrooesophageal reflux disease [Unknown]
  - Colitis ulcerative [Unknown]
  - Gastrointestinal injury [Unknown]
  - Headache [Unknown]
  - Dry skin [Unknown]
  - Skin papilloma [Recovering/Resolving]
  - Hiatus hernia [Unknown]
  - Crohn^s disease [Unknown]
  - Migraine [Unknown]
  - Aphthous ulcer [Unknown]
  - Asthma [Unknown]
  - Somnolence [Unknown]
  - Bronchospasm [Unknown]
  - Blood triglycerides increased [Unknown]
  - Inflammatory bowel disease [Unknown]

NARRATIVE: CASE EVENT DATE: 2002
